FAERS Safety Report 23431274 (Version 1)
Quarter: 2024Q1

REPORT INFORMATION
  Report Type: Spontaneous
  Country: US (occurrence: US)
  Receive Date: 20240123
  Receipt Date: 20240123
  Transmission Date: 20240410
  Serious: No
  Sender: FDA-Public Use
  Company Number: US-ELI_LILLY_AND_COMPANY-US202401008638

PATIENT
  Age: 52 Year
  Sex: Female

DRUGS (3)
  1. VERZENIO [Suspect]
     Active Substance: ABEMACICLIB
     Indication: Product used for unknown indication
     Dosage: UNK, UNKNOWN
     Route: 065
     Dates: end: 20231120
  2. DUPIXENT [Suspect]
     Active Substance: DUPILUMAB
     Indication: Asthma
     Dosage: 600 MG, ONCE
     Route: 058
     Dates: start: 20231009
  3. DUPIXENT [Suspect]
     Active Substance: DUPILUMAB
     Dosage: 300 MG, EVERY OTHER WEEK
     Route: 058

REACTIONS (1)
  - Alopecia [Unknown]

NARRATIVE: CASE EVENT DATE: 20231101
